FAERS Safety Report 9723606 (Version 4)
Quarter: 2014Q2

REPORT INFORMATION
  Report Type: Report from Study
  Country: JP (occurrence: JP)
  Receive Date: 20131202
  Receipt Date: 20140605
  Transmission Date: 20141212
  Serious: Yes (Hospitalization)
  Sender: FDA-Public Use
  Company Number: PHHY2013JP125381

PATIENT
  Age: 70 Year
  Sex: Male
  Weight: 70 kg

DRUGS (15)
  1. CERTICAN [Suspect]
     Indication: RENAL TRANSPLANT
     Dosage: 2 MG, DAILY
     Route: 048
     Dates: start: 20130327, end: 20130407
  2. CERTICAN [Suspect]
     Dosage: 1.5 MG, DAILY
     Route: 048
     Dates: start: 20130408, end: 20130501
  3. CERTICAN [Suspect]
     Dosage: 2 MG, DAILY
     Route: 048
     Dates: start: 20130502, end: 20130513
  4. CERTICAN [Suspect]
     Dosage: 1 MG, DAILY
     Dates: start: 20130514
  5. GRACEPTOR [Concomitant]
     Indication: RENAL TRANSPLANT
     Dosage: 1.5 MG, UNK
     Route: 048
  6. GRACEPTOR [Concomitant]
     Dosage: 1.5 MG, UNK
     Route: 048
  7. GRACEPTOR [Concomitant]
     Dosage: 2 MG, UNK
     Route: 048
  8. GRACEPTOR [Concomitant]
     Dosage: 1.5 MG, UNK
     Route: 048
  9. CELLCEPT [Concomitant]
     Indication: RENAL TRANSPLANT
     Dosage: 1000 MG, UNK
     Route: 048
  10. MEDROL [Concomitant]
     Indication: RENAL TRANSPLANT
     Dosage: 4 MG, UNK
     Route: 048
  11. MEDROL [Concomitant]
     Dosage: 4 MG, UNK
     Route: 048
  12. ACTONEL [Concomitant]
     Dosage: 2.5 MG, UNK
     Route: 048
  13. AZILVA [Concomitant]
     Dosage: 40 MG, UNK
     Route: 048
  14. BAKTAR [Concomitant]
     Dosage: 200 MG, UNK
     Route: 048
  15. PARIET [Concomitant]
     Dosage: 10 MG, UNK
     Route: 048

REACTIONS (6)
  - Cardiac failure [Recovered/Resolved]
  - Brain natriuretic peptide increased [Unknown]
  - Dyslipidaemia [Recovering/Resolving]
  - Low density lipoprotein increased [Unknown]
  - Blood triglycerides increased [Unknown]
  - Immunosuppressant drug level increased [Recovering/Resolving]
